FAERS Safety Report 6717890-X (Version None)
Quarter: 2010Q2

REPORT INFORMATION
  Report Type: 
  Country: None (occurrence: None)
  Receive Date: 20100504
  Receipt Date: 20100420
  Transmission Date: 20101027
  Serious: Yes (Other)
  Sender: FDA-Public Use
  Company Number: US-1181615

PATIENT
  Sex: Male
  Weight: 72.5755 kg

DRUGS (2)
  1. NEVANAC [Suspect]
     Indication: CATARACT OPERATION
     Dosage: (1 GTT OU QID OPHTHALMIC) ; (1 GTT OU QID OPHTHALMIC)
     Route: 047
     Dates: start: 20100218
  2. OMNIPRED [Suspect]
     Indication: CATARACT OPERATION
     Dosage: SEE IMAGE
     Route: 047
     Dates: start: 20100429

REACTIONS (2)
  - RETINAL OEDEMA [None]
  - VISUAL ACUITY REDUCED [None]
